FAERS Safety Report 5150046-3 (Version None)
Quarter: 2006Q4

REPORT INFORMATION
  Report Type: 
  Country: None (occurrence: None)
  Receive Date: 20061113
  Receipt Date: 20061108
  Transmission Date: 20070319
  Serious: Yes (Other)
  Sender: FDA-Public Use
  Company Number: CA-MERCK-0611CAN00064

PATIENT
  Age: 76 Year
  Sex: Female

DRUGS (12)
  1. ZOCOR [Suspect]
     Route: 048
  2. CANDESARTAN CILEXETIL [Suspect]
     Route: 048
  3. LISINOPRIL [Suspect]
     Route: 048
  4. HYDROCHLOROTHIAZIDE [Suspect]
     Route: 065
  5. SOTALOL HYDROCHLORIDE [Suspect]
     Route: 065
  6. SPIRONOLACTONE [Suspect]
     Route: 065
  7. TERAZOSIN HCL [Suspect]
     Route: 065
  8. ZOPICLONE [Suspect]
     Route: 065
  9. ASPIRIN [Concomitant]
     Route: 065
  10. EPOETIN ALFA [Concomitant]
     Route: 065
  11. ESTRADIOL [Concomitant]
     Route: 065
  12. CITALOPRAM [Suspect]
     Route: 065

REACTIONS (8)
  - BLOOD CREATININE INCREASED [None]
  - BLOOD UREA INCREASED [None]
  - BRADYCARDIA [None]
  - DIZZINESS [None]
  - HYPOTENSION [None]
  - HYPOVOLAEMIA [None]
  - MUSCULAR WEAKNESS [None]
  - RENAL FAILURE ACUTE [None]
